FAERS Safety Report 4700841-7 (Version None)
Quarter: 2005Q2

REPORT INFORMATION
  Report Type: 
  Country: None (occurrence: None)
  Receive Date: 20050209
  Receipt Date: 20050209
  Transmission Date: 20051028
  Serious: Yes (Other)
  Sender: FDA-Public Use
  Company Number: None

PATIENT
  Weight: 52.1637 kg

DRUGS (1)
  1. SULINDAC [Suspect]
     Indication: RHEUMATOID ARTHRITIS
     Dosage: 200MG ONE TAB BID

REACTIONS (3)
  - BLOOD PRESSURE INADEQUATELY CONTROLLED [None]
  - OEDEMA [None]
  - WEIGHT DECREASED [None]
